FAERS Safety Report 23058627 (Version 4)
Quarter: 2023Q4

REPORT INFORMATION
  Report Type: Report from Study
  Country: US (occurrence: US)
  Receive Date: 20231012
  Receipt Date: 20231205
  Transmission Date: 20240110
  Serious: Yes (Hospitalization, Other)
  Sender: FDA-Public Use
  Company Number: US-UCBSA-2023046038

PATIENT
  Sex: Male

DRUGS (2)
  1. BRIVARACETAM [Suspect]
     Active Substance: BRIVARACETAM
     Indication: Seizure
     Dosage: 50 MILLIGRAM, 2X/DAY (BID), FEEDING TUBE AS LIQUID SOLUTION
     Dates: start: 202309
  2. BRIVARACETAM [Suspect]
     Active Substance: BRIVARACETAM
     Indication: Epilepsy

REACTIONS (7)
  - Pneumonia [Recovered/Resolved]
  - Seizure [Unknown]
  - Oxygen saturation decreased [Recovered/Resolved]
  - SARS-CoV-2 test negative [Not Recovered/Not Resolved]
  - Aspiration [Recovered/Resolved]
  - Hypoxia [Not Recovered/Not Resolved]
  - Feeding tube user [Not Recovered/Not Resolved]

NARRATIVE: CASE EVENT DATE: 20230101
